FAERS Safety Report 20518855 (Version 2)
Quarter: 2022Q1

REPORT INFORMATION
  Report Type: Other
  Country: TR (occurrence: None)
  Receive Date: 20220225
  Receipt Date: 20220322
  Transmission Date: 20220423
  Serious: Yes (Death)
  Sender: FDA-Public Use
  Company Number: TR-ROCHE-3027582

PATIENT
  Age: 70 Year
  Sex: Female
  Weight: 70 kg

DRUGS (4)
  1. GLOFITAMAB [Suspect]
     Active Substance: GLOFITAMAB
     Indication: Diffuse large B-cell lymphoma
     Dosage: 8TH DAY: GLOFITAMAB 2.5 MG, 15TH DAY: GLOFITAMAB 10 MG.?EACH TREATMENT CYCLE LASTS FOR 21 DAYS?FROM
     Route: 042
     Dates: start: 20220211
  2. OBINUTUZUMAB [Suspect]
     Active Substance: OBINUTUZUMAB
     Indication: Diffuse large B-cell lymphoma
     Dosage: 1ST DAY: OBINUTUZUMAB (GAZYVA) AS PRE-TREATMENT, 1000 MG FIXED DOSE (ADMINISTERED ONCE)
     Route: 042
     Dates: start: 20220204
  3. VALTREX [Concomitant]
     Active Substance: VALACYCLOVIR HYDROCHLORIDE
  4. BACTRIM [Concomitant]
     Active Substance: SULFAMETHOXAZOLE\TRIMETHOPRIM

REACTIONS (1)
  - Cytokine release syndrome [Fatal]

NARRATIVE: CASE EVENT DATE: 20220212
